FAERS Safety Report 16905435 (Version 2)
Quarter: 2019Q4

REPORT INFORMATION
  Report Type: Report from Study
  Country: FR (occurrence: FR)
  Receive Date: 20191010
  Receipt Date: 20191226
  Transmission Date: 20200122
  Serious: Yes (Disabling, Other)
  Sender: FDA-Public Use
  Company Number: FR-BAUSCH-BL-2019-055858

PATIENT
  Sex: Male
  Weight: 82 kg

DRUGS (6)
  1. VELCADE [Suspect]
     Active Substance: BORTEZOMIB
     Indication: PRODUCT USED FOR UNKNOWN INDICATION
     Route: 065
  2. REVLIMID [Suspect]
     Active Substance: LENALIDOMIDE
     Indication: PLASMA CELL MYELOMA
     Route: 065
     Dates: start: 20180123
  3. DEXAMETHASONE. [Suspect]
     Active Substance: DEXAMETHASONE
     Indication: PLASMA CELL MYELOMA
     Route: 065
     Dates: end: 20180703
  4. IXAZOMIB [Suspect]
     Active Substance: IXAZOMIB
     Indication: PLASMA CELL MYELOMA
     Route: 065
     Dates: start: 20180122
  5. IXAZOMIB [Suspect]
     Active Substance: IXAZOMIB
     Indication: OFF LABEL USE
     Route: 065
     Dates: start: 20190513
  6. REVLIMID [Suspect]
     Active Substance: LENALIDOMIDE
     Route: 065

REACTIONS (12)
  - Orthostatic hypotension [Unknown]
  - Dizziness [Unknown]
  - Pyrexia [Recovered/Resolved]
  - Asthenia [Unknown]
  - Weight decreased [Unknown]
  - Bacteriuria [Recovered/Resolved]
  - Neuropathy peripheral [Recovering/Resolving]
  - Diarrhoea [Recovered/Resolved]
  - Thrombocytopenia [Recovering/Resolving]
  - Off label use [Unknown]
  - Lung abscess [Not Recovered/Not Resolved]
  - Lung disorder [Recovered/Resolved]

NARRATIVE: CASE EVENT DATE: 20180616
